FAERS Safety Report 26000637 (Version 1)
Quarter: 2025Q4

REPORT INFORMATION
  Report Type: Spontaneous
  Country: US (occurrence: None)
  Receive Date: 20251104
  Receipt Date: 20251104
  Transmission Date: 20260118
  Serious: Yes (Other)
  Sender: FDA-CTU
  Company Number: None

PATIENT
  Age: 20 Year
  Sex: Female
  Weight: 90 kg

DRUGS (2)
  1. DESVENLAFAXINE [Suspect]
     Active Substance: DESVENLAFAXINE
     Indication: Depression
     Dosage: 1 TABLET ORAL
     Route: 048
     Dates: start: 20251031
  2. DESVENLAFAXINE [Suspect]
     Active Substance: DESVENLAFAXINE
     Indication: Anxiety

REACTIONS (6)
  - Nausea [None]
  - Suicidal ideation [None]
  - Pain [None]
  - Urinary retention [None]
  - Urinary tract infection [None]
  - Dehydration [None]

NARRATIVE: CASE EVENT DATE: 20251031
